FAERS Safety Report 4577630-X (Version None)
Quarter: 2005Q1

REPORT INFORMATION
  Report Type: 
  Country: None (occurrence: None)
  Receive Date: 20050208
  Receipt Date: 20050128
  Transmission Date: 20050727
  Serious: Yes (Other)
  Sender: FDA-Public Use
  Company Number: S04-FRA-07953-01

PATIENT
  Age: 50 Year
  Sex: Male
  Weight: 80 kg

DRUGS (4)
  1. SEROPLEX            (ESCITALOPRAM) [Suspect]
     Indication: DEPRESSION
     Dosage: 10 MG QD PO
     Route: 048
     Dates: start: 20041001, end: 20041108
  2. ZYPREXA [Suspect]
     Indication: DEPRESSION
     Dosage: 7.5 MG QD PO
     Route: 048
     Dates: start: 20040101
  3. SEROPRAM                          (CITALOPRAM HYDROBROMIDE) [Concomitant]
  4. ATARAX [Concomitant]

REACTIONS (1)
  - HYPERTENSIVE CRISIS [None]
